FAERS Safety Report 4378434-3 (Version None)
Quarter: 2004Q2

REPORT INFORMATION
  Report Type: 
  Country: None (occurrence: None)
  Receive Date: 20040609
  Receipt Date: 20040525
  Transmission Date: 20050107
  Serious: Yes (Hospitalization)
  Sender: FDA-Public Use
  Company Number: 2004216808FR

PATIENT
  Age: 2 Year
  Sex: Male

DRUGS (3)
  1. VANTIN [Suspect]
     Dosage: ORAL
     Route: 048
     Dates: start: 20040304, end: 20040306
  2. AUGMENTIN '125' [Suspect]
     Dosage: ORAL
     Route: 048
     Dates: start: 20040306, end: 20040309
  3. ADVIL [Suspect]
     Indication: PYREXIA
     Dosage: ORAL
     Route: 048
     Dates: start: 20040304, end: 20040309

REACTIONS (3)
  - LYMPHADENITIS [None]
  - RETROPHARYNGEAL ABSCESS [None]
  - TORTICOLLIS [None]
